FAERS Safety Report 8315030-7 (Version None)
Quarter: 2012Q2

REPORT INFORMATION
  Report Type: 
  Country: None (occurrence: None)
  Receive Date: 20120426
  Receipt Date: 20120419
  Transmission Date: 20120825
  Serious: Yes (Hospitalization)
  Sender: FDA-Public Use
  Company Number: US-ABBOTT-12P-163-0927431-00

PATIENT
  Sex: Female

DRUGS (2)
  1. MERCAPTOPURINE [Suspect]
     Indication: PRODUCT USED FOR UNKNOWN INDICATION
  2. HUMIRA [Suspect]
     Indication: CROHN'S DISEASE

REACTIONS (12)
  - DIARRHOEA [None]
  - BACTERIAL INFECTION [None]
  - INJECTION SITE PAIN [None]
  - PANCREATITIS [None]
  - PARAESTHESIA [None]
  - PAIN OF SKIN [None]
  - ABDOMINAL DISTENSION [None]
  - PYREXIA [None]
  - HYPOAESTHESIA [None]
  - GASTROINTESTINAL BACTERIAL INFECTION [None]
  - BACK PAIN [None]
  - PAIN IN EXTREMITY [None]
